FAERS Safety Report 24681737 (Version 1)
Quarter: 2024Q4

REPORT INFORMATION
  Report Type: Spontaneous
  Country: US (occurrence: US)
  Receive Date: 20241130
  Receipt Date: 20241130
  Transmission Date: 20250114
  Serious: Yes (Other)
  Sender: ABBVIE
  Company Number: US-ABBVIE-6024917

PATIENT
  Sex: Male

DRUGS (1)
  1. REFRESH RELIEVA PF [Suspect]
     Active Substance: CARBOXYMETHYLCELLULOSE SODIUM\GLYCERIN
     Indication: Product used for unknown indication
     Dosage: CMC;GLYCERIN 0.5% SOL (011364X?STRENGTH 10 MILLILITRE
     Route: 047

REACTIONS (3)
  - Cataract [Unknown]
  - Product container issue [Not Recovered/Not Resolved]
  - Hypersensitivity [Unknown]
